FAERS Safety Report 6167441-6 (Version None)
Quarter: 2009Q2

REPORT INFORMATION
  Report Type: 
  Country: None (occurrence: None)
  Receive Date: 20090424
  Receipt Date: 20090417
  Transmission Date: 20091009
  Serious: Yes (Death)
  Sender: FDA-Public Use
  Company Number: PHHY2009JP07701

PATIENT
  Sex: Male

DRUGS (31)
  1. ZOLEDRONIC ACID [Suspect]
     Indication: LUNG NEOPLASM MALIGNANT
     Dosage: 4 MG, ONCE/SINGLE
     Route: 042
     Dates: start: 20071218, end: 20071218
  2. NEUROTROPIN [Concomitant]
     Dosage: 8 DF
     Route: 048
     Dates: start: 20071208, end: 20071213
  3. DEPAS [Concomitant]
     Dosage: 20 MG
     Route: 048
     Dates: start: 20071208
  4. DEPAS [Concomitant]
     Dosage: 40 MG
     Route: 048
  5. DEPAS [Concomitant]
     Dosage: 40 MG
     Route: 048
  6. DEPAS [Concomitant]
     Dosage: 60 MG
     Route: 048
  7. DEPAS [Concomitant]
     Dosage: 20 MG
     Route: 048
  8. DEPAS [Concomitant]
     Dosage: 40 MG
     Route: 048
  9. DEPAS [Concomitant]
     Dosage: 20 MG
     Route: 048
     Dates: end: 20071223
  10. MAGMITT [Concomitant]
     Dosage: 2250 MG
     Route: 048
     Dates: start: 20071208, end: 20080110
  11. MAGMITT [Concomitant]
     Dosage: 4500 MG
     Route: 048
  12. MAGMITT [Concomitant]
     Dosage: 2250 MG
     Route: 048
  13. NOVAMIN [Concomitant]
     Dosage: 45 MG
     Dates: start: 20071208
  14. NOVAMIN [Concomitant]
     Dosage: 90 MG
  15. NOVAMIN [Concomitant]
     Dosage: 45 MG
     Dates: end: 20080110
  16. HARNAL [Concomitant]
     Dosage: 0.2 MG
     Route: 048
     Dates: start: 20071210, end: 20080110
  17. ASPIRIN [Concomitant]
     Dosage: 0.2 MG
     Route: 048
     Dates: start: 20071210, end: 20080110
  18. LIPITOR [Concomitant]
     Dosage: 10 MG
     Route: 048
     Dates: start: 20071210, end: 20080110
  19. CEPHADOL [Concomitant]
     Dosage: 225 MG
     Route: 048
     Dates: start: 20071210, end: 20080110
  20. TERNELIN [Concomitant]
     Dosage: 9 MG
     Route: 048
     Dates: start: 20071210, end: 20080110
  21. LOXONIN [Concomitant]
     Dosage: 540 MG
     Route: 048
     Dates: start: 20071210, end: 20080110
  22. CYANOCOBALAMIN [Concomitant]
     Dosage: 4500 UG
     Route: 048
     Dates: start: 20071210, end: 20080110
  23. SERENACE [Concomitant]
     Dosage: 0.75 MG
     Route: 048
     Dates: start: 20071212, end: 20071212
  24. MUCOSOLVAN [Concomitant]
     Dosage: 45 MG
     Route: 048
     Dates: start: 20071220, end: 20071227
  25. OXINORM [Concomitant]
     Dosage: 7 DF
     Route: 048
     Dates: start: 20071208, end: 20080106
  26. SOLANAX [Concomitant]
     Dosage: 3.6 DF
     Route: 048
     Dates: start: 20071226
  27. SOLANAX [Concomitant]
     Dosage: 4 MG
     Route: 048
     Dates: start: 20071224
  28. TRYPTANOL [Concomitant]
     Dosage: 25 MG
     Route: 048
     Dates: start: 20071226, end: 20080110
  29. LENDORMIN [Concomitant]
     Dosage: 0.25 MG
     Route: 048
     Dates: start: 20071226, end: 20080103
  30. DUROTEP JANSSEN [Concomitant]
     Dosage: 50 MG
     Dates: start: 20080105, end: 20080108
  31. OPSO DAINIPPON [Concomitant]
     Dosage: 10 MG
     Route: 048
     Dates: start: 20080108

REACTIONS (4)
  - BLOOD UREA INCREASED [None]
  - DEHYDRATION [None]
  - GENERAL PHYSICAL HEALTH DETERIORATION [None]
  - NEOPLASM MALIGNANT [None]
